FAERS Safety Report 19002564 (Version 1)
Quarter: 2021Q1

REPORT INFORMATION
  Report Type: Spontaneous
  Country: US (occurrence: US)
  Receive Date: 20210312
  Receipt Date: 20210312
  Transmission Date: 20210420
  Serious: No
  Sender: FDA-Public Use
  Company Number: US-ALLERGAN-2007721US

PATIENT
  Sex: Male

DRUGS (1)
  1. ESTRADIOL VAGINAL CREAM USP 0.01% [Suspect]
     Active Substance: ESTRADIOL
     Indication: EXPOSURE VIA PARTNER

REACTIONS (3)
  - Burning sensation [Unknown]
  - Accidental exposure to product [Unknown]
  - Dysuria [Unknown]
